FAERS Safety Report 6380965-1 (Version None)
Quarter: 2009Q3

REPORT INFORMATION
  Report Type: 
  Country: None (occurrence: None)
  Receive Date: 20090924
  Receipt Date: 20090911
  Transmission Date: 20100115
  Serious: Yes (Other)
  Sender: FDA-Public Use
  Company Number: 2009-03729

PATIENT
  Age: 55 Year
  Sex: Female

DRUGS (2)
  1. VELCADE [Suspect]
     Indication: DRUG USE FOR UNKNOWN INDICATION
  2. DEXAMETHASONE 0.5MG TAB [Concomitant]

REACTIONS (3)
  - CONDITION AGGRAVATED [None]
  - RENAL FAILURE [None]
  - RENAL TUBULAR NECROSIS [None]
